FAERS Safety Report 24196233 (Version 1)
Quarter: 2024Q3

REPORT INFORMATION
  Report Type: Spontaneous
  Country: US (occurrence: US)
  Receive Date: 20240809
  Receipt Date: 20240809
  Transmission Date: 20241017
  Serious: Yes (Hospitalization, Other)
  Sender: VISTAPHARM
  Company Number: US-VISTAPHARM-2024-US-042496

PATIENT
  Age: 43 Year
  Sex: Female

DRUGS (3)
  1. MORPHINE [Suspect]
     Active Substance: MORPHINE
     Indication: Back pain
  2. MONTELUKAST [Concomitant]
     Active Substance: MONTELUKAST SODIUM
  3. OXYCODONE HYDROCHLORIDE [Suspect]
     Active Substance: OXYCODONE HYDROCHLORIDE
     Indication: Back pain

REACTIONS (1)
  - Asthma [Unknown]
